FAERS Safety Report 12048108 (Version 2)
Quarter: 2016Q1

REPORT INFORMATION
  Report Type: Spontaneous
  Country: US (occurrence: US)
  Receive Date: 20160209
  Receipt Date: 20160302
  Transmission Date: 20160526
  Serious: No
  Sender: FDA-Public Use
  Company Number: US-ENDO PHARMACEUTICALS INC-2015SCPR010429

PATIENT

DRUGS (2)
  1. NASCOBAL [Suspect]
     Active Substance: CYANOCOBALAMIN
     Indication: PRODUCT USED FOR UNKNOWN INDICATION
     Dosage: 2 SPR, WEEKLY, ONE SPRAY EACH NOSTRIL ONCE A WEEK
     Route: 045
  2. NASCOBAL [Suspect]
     Active Substance: CYANOCOBALAMIN
     Dosage: 2 SPR, WEEKLY, ONE SPRAY EACH NOSTRIL ONCE A WEEK
     Route: 045
     Dates: start: 201502, end: 201502

REACTIONS (2)
  - No adverse event [Unknown]
  - Extra dose administered [Unknown]
